FAERS Safety Report 11727357 (Version 1)
Quarter: 2015Q4

REPORT INFORMATION
  Report Type: Spontaneous
  Country: US (occurrence: US)
  Receive Date: 20151112
  Receipt Date: 20151112
  Transmission Date: 20160304
  Serious: No
  Sender: FDA-Public Use
  Company Number: US-PFIZER INC-2015370907

PATIENT
  Sex: Male

DRUGS (1)
  1. LYRICA [Suspect]
     Active Substance: PREGABALIN
     Dosage: 200 MG, DAILY

REACTIONS (5)
  - Gait disturbance [Unknown]
  - Paraesthesia [Unknown]
  - Skin discolouration [Unknown]
  - Swelling [Unknown]
  - Burning sensation [Unknown]
